FAERS Safety Report 5418868-9 (Version None)
Quarter: 2007Q3

REPORT INFORMATION
  Report Type: 
  Country: None (occurrence: None)
  Receive Date: 20070718
  Receipt Date: 20060717
  Transmission Date: 20080115
  Serious: Yes (Hospitalization)
  Sender: FDA-Public Use
  Company Number: 2006091146

PATIENT
  Age: 41 Year
  Sex: Male
  Weight: 127.0072 kg

DRUGS (3)
  1. CELEBREX [Suspect]
     Indication: INFLAMMATION
     Dates: start: 20020725
  2. CELEBREX [Suspect]
     Indication: NERVE INJURY
     Dates: start: 20020725
  3. CELEBREX [Suspect]
     Indication: SURGERY
     Dates: start: 20020725

REACTIONS (1)
  - MYOCARDIAL INFARCTION [None]
